FAERS Safety Report 8379404-0 (Version None)
Quarter: 2012Q1

REPORT INFORMATION
  Report Type: 
  Country: None (occurrence: None)
  Receive Date: 20120323
  Receipt Date: 20110411
  Transmission Date: 20120608
  Serious: Yes (Other)
  Sender: FDA-Public Use
  Company Number: 163-21880-11032074

PATIENT
  Age: 50 Year
  Sex: Female
  Weight: 58.9676 kg

DRUGS (12)
  1. VALTREX (VALACICLOVIR HYDROCHLORIDE) (UNKNOWN) [Concomitant]
  2. PRENATAL VITAMINS (PRENATAL VITAMINS) (UNKNOWN) [Concomitant]
  3. XANAX [Concomitant]
  4. ASPIRIN [Concomitant]
  5. METHADONE HCL [Concomitant]
  6. MORPHINE SULPHATE (MORPHINE SULFATE) (UNKNOWN) [Concomitant]
  7. LEVOTHYROXINE SODIUM [Concomitant]
  8. DALMANE (FLURAZEPAM HYDROCHLORIDE) (UNKNOWN) [Concomitant]
  9. REVLIMID [Suspect]
     Indication: MULTIPLE MYELOMA
     Dosage: 10 MG, X 28 DAYS, PO 10 MG, X 28 DAYS, PO
     Route: 048
     Dates: start: 20101209, end: 20110303
  10. REVLIMID [Suspect]
     Indication: MULTIPLE MYELOMA
     Dosage: 10 MG, X 28 DAYS, PO 10 MG, X 28 DAYS, PO
     Route: 048
     Dates: start: 20100701
  11. LAMICTAL [Concomitant]
  12. REMERON (MIRTAZAPINE) (UNKNOWN) [Concomitant]

REACTIONS (3)
  - WHITE BLOOD CELL COUNT DECREASED [None]
  - PNEUMONIA [None]
  - RED BLOOD CELL COUNT DECREASED [None]
